FAERS Safety Report 21388530 (Version 2)
Quarter: 2022Q4

REPORT INFORMATION
  Report Type: Spontaneous
  Country: US (occurrence: US)
  Receive Date: 20220928
  Receipt Date: 20221011
  Transmission Date: 20230112
  Serious: Yes (Other)
  Sender: FDA-Public Use
  Company Number: US-BIOMARINAP-US-2022-145810

PATIENT

DRUGS (2)
  1. VIMIZIM [Suspect]
     Active Substance: ELOSULFASE ALFA
     Indication: Mucopolysaccharidosis IV
     Dosage: 32 MILLIGRAM, QW
     Route: 042
     Dates: start: 20160926
  2. VIMIZIM [Suspect]
     Active Substance: ELOSULFASE ALFA
     Indication: Malignant palate neoplasm

REACTIONS (2)
  - Hip surgery [Not Recovered/Not Resolved]
  - Limb operation [Not Recovered/Not Resolved]

NARRATIVE: CASE EVENT DATE: 20220930
